FAERS Safety Report 5112452-2 (Version None)
Quarter: 2006Q3

REPORT INFORMATION
  Report Type: 
  Country: None (occurrence: None)
  Receive Date: 20060922
  Receipt Date: 20060829
  Transmission Date: 20061208
  Serious: Yes (Hospitalization, Other)
  Sender: FDA-Public Use
  Company Number: US-BAYER-200613672BCC

PATIENT
  Age: 42 Year
  Sex: Female
  Weight: 100 kg

DRUGS (7)
  1. ALEVE [Suspect]
     Indication: BACK PAIN
     Dosage: TOTAL DAILY DOSE: 440 MG  UNIT DOSE: 220 MG
     Route: 048
     Dates: start: 20060501, end: 20060730
  2. PREMARIN [Concomitant]
     Dates: start: 20040825
  3. GENERIC CALCIUM WITH VITAMIN D [Concomitant]
     Dosage: TOTAL DAILY DOSE: 1200 MG  UNIT DOSE: 600 MG
  4. ZOCOR [Concomitant]
     Dates: start: 20060501
  5. BLOOD PRESSURE MEDICATIONS [Concomitant]
  6. HORMONE PILLS [Concomitant]
  7. MILK OF MAGNESIA TAB [Concomitant]

REACTIONS (7)
  - ABDOMINAL PAIN UPPER [None]
  - CHEST PAIN [None]
  - CONSTIPATION [None]
  - DYSPEPSIA [None]
  - HEART RATE ABNORMAL [None]
  - HEART RATE INCREASED [None]
  - PAIN [None]
